FAERS Safety Report 4564069-6 (Version None)
Quarter: 2005Q1

REPORT INFORMATION
  Report Type: 
  Country: None (occurrence: None)
  Receive Date: 20050128
  Receipt Date: 20041229
  Transmission Date: 20050727
  Serious: Yes (Death, Life-Threatening, Hospitalization)
  Sender: FDA-Public Use
  Company Number: JP-MERCK-0501USA00217

PATIENT
  Age: 78 Year
  Sex: Male

DRUGS (6)
  1. PEPCID [Suspect]
     Indication: PROPHYLAXIS
     Route: 042
     Dates: start: 20041221, end: 20041222
  2. PEPCID [Suspect]
     Route: 042
     Dates: start: 20041223, end: 20041225
  3. ERYTHROCIN [Suspect]
     Indication: PNEUMONIA
     Route: 042
     Dates: start: 20041220, end: 20041221
  4. MEROPENEM [Concomitant]
     Indication: PNEUMONIA
     Route: 042
     Dates: start: 20041220, end: 20041227
  5. ELASPOL [Concomitant]
     Route: 042
     Dates: start: 20041221, end: 20041229
  6. DENOSINE [Concomitant]
     Route: 042
     Dates: start: 20041221, end: 20041231

REACTIONS (11)
  - CORONARY ARTERY DISEASE [None]
  - CORONARY ARTERY STENOSIS [None]
  - DISSEMINATED INTRAVASCULAR COAGULATION [None]
  - HAEMORRHAGE [None]
  - LUNG DISORDER [None]
  - MYOCARDIAL ISCHAEMIA [None]
  - PLATELET COUNT INCREASED [None]
  - PULMONARY ALVEOLAR HAEMORRHAGE [None]
  - TRANSAMINASES INCREASED [None]
  - VENTRICULAR FIBRILLATION [None]
  - VENTRICULAR TACHYCARDIA [None]
